FAERS Safety Report 25598604 (Version 2)
Quarter: 2025Q3

REPORT INFORMATION
  Report Type: Report from Study
  Country: CA (occurrence: CA)
  Receive Date: 20250723
  Receipt Date: 20250902
  Transmission Date: 20251021
  Serious: Yes (Other)
  Sender: ABBVIE
  Company Number: CA-ABBVIE-6380410

PATIENT
  Age: 73 Year
  Sex: Male

DRUGS (2)
  1. SKYRIZI [Suspect]
     Active Substance: RISANKIZUMAB-RZAA
     Indication: Psoriasis
     Dosage: 150MG AT WEEKS 0 AND 4 THEN EVERY 12 WEEKS
     Route: 058
     Dates: start: 20250409, end: 20250704
  2. SKYRIZI [Suspect]
     Active Substance: RISANKIZUMAB-RZAA
     Dosage: 150MG AT WEEKS 0 AND 4 THEN EVERY 12 WEEKS
     Route: 058

REACTIONS (7)
  - Hepatic neoplasm [Unknown]
  - Neoplasm malignant [Unknown]
  - Pain [Unknown]
  - Rash [Unknown]
  - Pruritus [Unknown]
  - Neoplasm [Unknown]
  - Psoriasis [Unknown]

NARRATIVE: CASE EVENT DATE: 20250101
